FAERS Safety Report 20567394 (Version 1)
Quarter: 2022Q1

REPORT INFORMATION
  Report Type: Spontaneous
  Country: NL (occurrence: NL)
  Receive Date: 20220308
  Receipt Date: 20220308
  Transmission Date: 20220423
  Serious: Yes (Hospitalization, Other)
  Sender: FDA-Public Use
  Company Number: NL-PFIZER INC-202200057019

PATIENT
  Age: 56 Year
  Sex: Female

DRUGS (7)
  1. PACLITAXEL [Interacting]
     Active Substance: PACLITAXEL
     Indication: HER2 positive breast cancer
     Dosage: 80 MILLIGRAM/SQ. METER, QW (80 MG/M2, WEEKLY)
     Dates: start: 2020
  2. PACLITAXEL [Interacting]
     Active Substance: PACLITAXEL
     Dosage: UNK (75 PERCENT OF THE ORIGINAL PACLITAXEL DOSE (CYCLE 2))
  3. PACLITAXEL [Interacting]
     Active Substance: PACLITAXEL
     Dosage: UNK (50 PERCENT PACLITAXEL DOSE REDUCTION (3RD CYCLE))
  4. LOPINAVIR\RITONAVIR [Interacting]
     Active Substance: LOPINAVIR\RITONAVIR
     Indication: HIV infection
     Dosage: UNK, QD (800 MG/200 MG, DAILY)
  5. LAMIVUDINE [Concomitant]
     Active Substance: LAMIVUDINE
     Indication: HIV infection
     Dosage: 300 MILLIGRAM, QD (300 MG, DAILY)
  6. PERTUZUMAB [Concomitant]
     Active Substance: PERTUZUMAB
     Indication: HER2 positive breast cancer
     Dosage: UNK, Q3W (420, 840 MG LOADING DOSE, EVERY 3 WEEKS)
  7. TRASTUZUMAB [Concomitant]
     Active Substance: TRASTUZUMAB
     Indication: HER2 positive breast cancer
     Dosage: UNK (6.8 MG/KG, LOADING DOSE, EVERY 3 WEEKS)
     Dates: start: 2020

REACTIONS (3)
  - Drug interaction [Recovering/Resolving]
  - Pancytopenia [Recovering/Resolving]
  - Febrile neutropenia [Recovered/Resolved]
